FAERS Safety Report 13438882 (Version 1)
Quarter: 2017Q2

REPORT INFORMATION
  Report Type: Spontaneous
  Country: US (occurrence: US)
  Receive Date: 20170413
  Receipt Date: 20170413
  Transmission Date: 20170830
  Serious: No
  Sender: FDA-Public Use
  Company Number: US-ROCHE-1242511

PATIENT
  Age: 41 Year
  Sex: Female

DRUGS (2)
  1. BACTRIM [Suspect]
     Active Substance: SULFAMETHOXAZOLE\TRIMETHOPRIM
     Indication: URINARY TRACT INFECTION
     Route: 065
  2. ROCEPHIN [Suspect]
     Active Substance: CEFTRIAXONE SODIUM
     Indication: URINARY TRACT INFECTION
     Route: 051
     Dates: start: 20130621

REACTIONS (18)
  - Paraesthesia oral [Recovered/Resolved]
  - Dry skin [Not Recovered/Not Resolved]
  - Eye irritation [Unknown]
  - Nervousness [Recovered/Resolved]
  - Dry mouth [Not Recovered/Not Resolved]
  - Dizziness [Recovered/Resolved]
  - Eye pain [Not Recovered/Not Resolved]
  - Sensory disturbance [Recovered/Resolved]
  - Urticaria [Unknown]
  - Tongue coated [Unknown]
  - Glossitis [Unknown]
  - Somnolence [Recovering/Resolving]
  - Formication [Recovered/Resolved]
  - Anxiety [Recovered/Resolved]
  - Oedema [Unknown]
  - Dry eye [Not Recovered/Not Resolved]
  - Paraesthesia [Unknown]
  - Dry skin [Unknown]

NARRATIVE: CASE EVENT DATE: 20130621
